FAERS Safety Report 4446490-X (Version None)
Quarter: 2004Q3

REPORT INFORMATION
  Report Type: 
  Country: None (occurrence: None)
  Receive Date: 20040908
  Receipt Date: 20040824
  Transmission Date: 20050211
  Serious: No
  Sender: FDA-Public Use
  Company Number: GB-2004-028739

PATIENT
  Age: 22 Year
  Sex: Female
  Weight: 66 kg

DRUGS (1)
  1. MIRENA [Suspect]
     Indication: CONTRACEPTION
     Dosage: 20 UG/DAY, CONT INTRA UTERINE
     Route: 015
     Dates: start: 20001215

REACTIONS (3)
  - AMENORRHOEA [None]
  - DEVICE FAILURE [None]
  - IUCD COMPLICATION [None]
